FAERS Safety Report 7560900-0 (Version None)
Quarter: 2011Q2

REPORT INFORMATION
  Report Type: 
  Country: None (occurrence: None)
  Receive Date: 20110621
  Receipt Date: 20110610
  Transmission Date: 20111010
  Serious: Yes (Hospitalization, Disabling)
  Sender: FDA-Public Use
  Company Number: DE-ROCHE-784264

PATIENT
  Sex: Female
  Weight: 70 kg

DRUGS (5)
  1. AMLODIPINE [Concomitant]
     Indication: HYPERTENSION
     Route: 048
  2. TILIDIN [Concomitant]
     Indication: BONE PAIN
     Route: 048
  3. HERCEPTIN [Suspect]
     Dosage: MONOTHERAPY; SECOND AND LAST ADMINISTRATION PRIOR TO THE EVENT WAS ON 25 MAY 2011.
     Route: 042
     Dates: start: 20110504
  4. METAMIZOL [Concomitant]
     Indication: BONE PAIN
     Route: 048
  5. RAMIPRIL [Concomitant]
     Indication: HYPERTENSION
     Route: 048

REACTIONS (1)
  - ATRIOVENTRICULAR BLOCK COMPLETE [None]
